FAERS Safety Report 9098446 (Version 1)
Quarter: 2013Q1

REPORT INFORMATION
  Report Type: Spontaneous
  Country: VE (occurrence: VE)
  Receive Date: 20130213
  Receipt Date: 20130213
  Transmission Date: 20140127
  Serious: Yes (Hospitalization, Disabling)
  Sender: FDA-Public Use
  Company Number: PHHY2013VE011886

PATIENT
  Sex: Male

DRUGS (4)
  1. ACLASTA [Suspect]
     Indication: OSTEOPOROSIS
     Dosage: 5 MG, ANNUALLY
     Route: 042
     Dates: start: 201007
  2. GALVUS MET [Suspect]
     Indication: DIABETES MELLITUS
     Dosage: 1 DF, (850 METFORMIN AND  500MG VILDAGLIPTIN) DAILY
     Route: 048
     Dates: start: 2010
  3. VALSARTAN [Concomitant]
     Indication: HYPERTENSION
     Dosage: 120 MG, UNK
     Route: 048
     Dates: start: 201111
  4. SALBUTAMOL [Concomitant]
     Indication: ASTHMA
     Dates: start: 2005

REACTIONS (8)
  - Cerebrovascular accident [Recovered/Resolved]
  - Headache [Unknown]
  - Vision blurred [Unknown]
  - Visual acuity reduced [Unknown]
  - Blood pressure inadequately controlled [Unknown]
  - Blood glucose abnormal [Unknown]
  - Dementia Alzheimer^s type [Not Recovered/Not Resolved]
  - Dementia [Not Recovered/Not Resolved]
